FAERS Safety Report 12908631 (Version 1)
Quarter: 2016Q4

REPORT INFORMATION
  Report Type: Spontaneous
  Country: FR (occurrence: FR)
  Receive Date: 20161103
  Receipt Date: 20161103
  Transmission Date: 20170207
  Serious: Yes (Hospitalization)
  Sender: FDA-Public Use
  Company Number: ALCN2016FR007229

PATIENT
  Age: 74 Year
  Sex: Female

DRUGS (1)
  1. ATROPINE SULFATE. [Suspect]
     Active Substance: ATROPINE SULFATE
     Indication: SALIVARY HYPERSECRETION
     Dosage: 4 GTT, ONCE/SINGLE
     Route: 048
     Dates: start: 20161006, end: 20161006

REACTIONS (6)
  - Intentional product misuse [Recovered/Resolved]
  - Hyperhidrosis [Recovered/Resolved]
  - Off label use [Recovered/Resolved]
  - Medication error [Recovered/Resolved]
  - Aphasia [Recovered/Resolved]
  - Wrong technique in product usage process [Recovered/Resolved]

NARRATIVE: CASE EVENT DATE: 20161007
